FAERS Safety Report 11502836 (Version 1)
Quarter: 2015Q3

REPORT INFORMATION
  Report Type: Spontaneous
  Country: US (occurrence: US)
  Receive Date: 20150914
  Receipt Date: 20150914
  Transmission Date: 20151125
  Serious: No
  Sender: FDA-Public Use
  Company Number: US-ASTELLAS-2015US029387

PATIENT
  Age: 83 Year
  Sex: Male

DRUGS (1)
  1. XTANDI [Suspect]
     Active Substance: ENZALUTAMIDE
     Indication: PROSTATE CANCER METASTATIC
     Dosage: 160 MG,(FOUR 40 MG) ONCE DAILY
     Route: 048
     Dates: start: 201507, end: 20150820

REACTIONS (6)
  - Dysphagia [Unknown]
  - Wrong technique in product usage process [Unknown]
  - Throat tightness [Unknown]
  - Oropharyngeal pain [Unknown]
  - Product size issue [Unknown]
  - Dysgeusia [Unknown]

NARRATIVE: CASE EVENT DATE: 201507
